FAERS Safety Report 7529885-7 (Version None)
Quarter: 2011Q2

REPORT INFORMATION
  Report Type: 
  Country: None (occurrence: None)
  Receive Date: 20110607
  Receipt Date: 20110602
  Transmission Date: 20111010
  Serious: Yes (Other)
  Sender: FDA-Public Use
  Company Number: GB-BRISTOL-MYERS SQUIBB COMPANY-15802580

PATIENT

DRUGS (1)
  1. VEPESID [Suspect]

REACTIONS (1)
  - RENAL IMPAIRMENT [None]
